FAERS Safety Report 7067591-6 (Version None)
Quarter: 2010Q4

REPORT INFORMATION
  Report Type: 
  Country: None (occurrence: None)
  Receive Date: 20101028
  Receipt Date: 20101015
  Transmission Date: 20110411
  Serious: Yes (Death, Other)
  Sender: FDA-Public Use
  Company Number: FR-CELGENEUS-056-50794-10101837

PATIENT

DRUGS (1)
  1. VIDAZA [Suspect]
     Route: 058

REACTIONS (8)
  - CEREBROVASCULAR ACCIDENT [None]
  - DEATH [None]
  - DISEASE PROGRESSION [None]
  - HAEMORRHAGE [None]
  - HEPATIC FAILURE [None]
  - PANCYTOPENIA [None]
  - POLYCHONDRITIS [None]
  - SEPSIS [None]
